FAERS Safety Report 11418927 (Version 5)
Quarter: 2015Q4

REPORT INFORMATION
  Report Type: Report from Study
  Country: US (occurrence: None)
  Receive Date: 20150824
  Receipt Date: 20151209
  Transmission Date: 20160304
  Serious: Yes (Hospitalization, Other)
  Sender: FDA-Public Use
  Company Number: ADR-2015-01609

PATIENT
  Age: 73 Year
  Sex: Female

DRUGS (2)
  1. BUPIVACAINE INTRATHECAL [Suspect]
     Active Substance: BUPIVACAINE
     Indication: PAIN
  2. BACLOFEN INTRATHECAL [Suspect]
     Active Substance: BACLOFEN
     Indication: PAIN

REACTIONS (6)
  - Pain [None]
  - Device damage [None]
  - Musculoskeletal pain [None]
  - Drug withdrawal syndrome [None]
  - Device ineffective [None]
  - Rotator cuff syndrome [None]
